FAERS Safety Report 7208460-8 (Version None)
Quarter: 2010Q4

REPORT INFORMATION
  Report Type: 
  Country: None (occurrence: None)
  Receive Date: 20101230
  Receipt Date: 20101230
  Transmission Date: 20110411
  Serious: Yes (Other)
  Sender: FDA-Public Use
  Company Number: None

PATIENT
  Sex: Male
  Weight: 90.7194 kg

DRUGS (4)
  1. ADVAIR DISKUS 250/50 [Suspect]
     Indication: ASTHMA
     Dosage: 2X DAY INHL
     Route: 055
     Dates: start: 20100306
  2. ADVAIR DISKUS 250/50 [Suspect]
     Indication: CHRONIC OBSTRUCTIVE PULMONARY DISEASE
     Dosage: 2X DAY INHL
     Route: 055
     Dates: start: 20100306
  3. FLONASE [Concomitant]
  4. PROAIR HFA [Concomitant]

REACTIONS (5)
  - ANGER [None]
  - CANDIDIASIS [None]
  - COUGH [None]
  - DYSPHONIA [None]
  - MOOD SWINGS [None]
